FAERS Safety Report 6208993-7 (Version None)
Quarter: 2009Q2

REPORT INFORMATION
  Report Type: 
  Country: None (occurrence: None)
  Receive Date: 20090529
  Receipt Date: 20090519
  Transmission Date: 20091009
  Serious: Yes (Other)
  Sender: FDA-Public Use
  Company Number: PHHY2009JP13856

PATIENT
  Sex: Male
  Weight: 68 kg

DRUGS (4)
  1. DIOVAN T30230+TAB+HY [Suspect]
     Dosage: 80 MG, QD
     Route: 048
     Dates: start: 20070821, end: 20080416
  2. DIOVAN T30230+TAB+HY [Suspect]
     Dosage: 160 MG, QD
     Route: 048
     Dates: start: 20080417, end: 20080508
  3. PLETAL [Concomitant]
     Dosage: 200 MG
     Route: 048
     Dates: start: 20070818, end: 20080508
  4. MAGMITT KENEI [Concomitant]
     Dosage: 990 MG
     Route: 048
     Dates: start: 20070828, end: 20080508

REACTIONS (2)
  - BLOOD GLUCOSE INCREASED [None]
  - CONSTIPATION [None]
